FAERS Safety Report 7291601-4 (Version None)
Quarter: 2011Q1

REPORT INFORMATION
  Report Type: 
  Country: None (occurrence: None)
  Receive Date: 20110214
  Receipt Date: 20110131
  Transmission Date: 20110831
  Serious: Yes (Death, Hospitalization, Disabling, Other)
  Sender: FDA-Public Use
  Company Number: US-CELGENEUS-163-20785-10120732

PATIENT
  Sex: Male

DRUGS (17)
  1. LASIX [Concomitant]
     Route: 065
  2. LASIX [Concomitant]
     Route: 065
  3. COUMADIN [Concomitant]
     Dosage: 2.5-5
     Route: 065
  4. COREG [Concomitant]
     Route: 065
  5. PRILOSEC [Concomitant]
     Route: 065
  6. FLOMAX [Concomitant]
     Route: 065
  7. PREDNISONE [Concomitant]
     Route: 065
  8. LORAZEPAM [Concomitant]
     Route: 065
  9. THALOMID [Suspect]
     Indication: MULTIPLE MYELOMA
     Route: 048
     Dates: start: 20100701, end: 20100830
  10. OXYCODONE HCL [Concomitant]
     Route: 065
  11. DECADRON [Concomitant]
     Route: 065
     Dates: start: 20100701
  12. ZOLOFT [Concomitant]
     Route: 065
  13. AVODART [Concomitant]
     Route: 065
  14. ASPIRIN [Concomitant]
     Route: 065
  15. POTASSIUM [Concomitant]
     Route: 065
  16. COMPAZINE [Concomitant]
     Route: 065
  17. SPIRONOLACTONE [Concomitant]
     Route: 065

REACTIONS (6)
  - CARDIAC FAILURE CONGESTIVE [None]
  - DEATH [None]
  - FLUID RETENTION [None]
  - RENAL FAILURE ACUTE [None]
  - DRUG INEFFECTIVE [None]
  - HYPOALBUMINAEMIA [None]
